FAERS Safety Report 24987372 (Version 1)
Quarter: 2025Q1

REPORT INFORMATION
  Report Type: Spontaneous
  Country: GB (occurrence: GB)
  Receive Date: 20250219
  Receipt Date: 20250219
  Transmission Date: 20250409
  Serious: Yes (Other)
  Sender: ASCEND THERAPEUTICS US, LLC
  Company Number: GB-Ascend Therapeutics US, LLC-2171358

PATIENT
  Age: 51 Year
  Sex: Female

DRUGS (2)
  1. ESTROGEL [Suspect]
     Active Substance: ESTRADIOL
     Indication: Hormone replacement therapy
  2. ESTRADIOL [Suspect]
     Active Substance: ESTRADIOL

REACTIONS (8)
  - Brain fog [Recovering/Resolving]
  - Insomnia [Recovering/Resolving]
  - Rash macular [Recovering/Resolving]
  - Rash [Recovering/Resolving]
  - Feeling jittery [Recovered/Resolved]
  - Breast pain [Recovered/Resolved]
  - Medication error [Unknown]
  - Depressed mood [Recovered/Resolved]
